FAERS Safety Report 10166541 (Version 3)
Quarter: 2014Q2

REPORT INFORMATION
  Report Type: Report from Study
  Country: US (occurrence: US)
  Receive Date: 20140512
  Receipt Date: 20140603
  Transmission Date: 20141212
  Serious: Yes (Hospitalization)
  Sender: FDA-Public Use
  Company Number: US-JNJFOC-20140503565

PATIENT
  Age: 17 Year
  Sex: Male
  Weight: 123.9 kg

DRUGS (20)
  1. REMICADE [Suspect]
     Indication: INFLAMMATORY BOWEL DISEASE
     Route: 042
     Dates: start: 200703, end: 200710
  2. ABILIFY [Concomitant]
     Route: 065
  3. NORVASC [Concomitant]
     Route: 065
  4. CALCIUM [Concomitant]
     Route: 065
  5. CLARITIN [Concomitant]
     Route: 065
  6. DOVONEX [Concomitant]
     Route: 061
  7. IRON [Concomitant]
     Route: 065
  8. CORTEF [Concomitant]
     Route: 065
  9. SOLUCORTEF [Concomitant]
     Route: 065
  10. IMODIUM A-D LIQUID [Concomitant]
     Route: 065
  11. LEXAPRO [Concomitant]
     Route: 065
  12. MULTIVITAMINS [Concomitant]
     Route: 065
  13. INDERAL LA [Concomitant]
     Route: 065
  14. PROTOPIC [Concomitant]
     Route: 061
  15. TYLENOL [Concomitant]
     Dosage: AS NEEDED
     Route: 061
  16. VITAMIN B COMPLEX [Concomitant]
     Route: 065
  17. VITAMIN B2 [Concomitant]
     Route: 065
  18. VITAMIN D3 [Concomitant]
     Route: 065
  19. ZOFRAN [Concomitant]
     Dosage: AS NEEDED
     Route: 065
  20. FLAGYL [Concomitant]
     Route: 065

REACTIONS (1)
  - Device related infection [Recovered/Resolved]
